FAERS Safety Report 6404778-7 (Version None)
Quarter: 2009Q4

REPORT INFORMATION
  Report Type: 
  Country: None (occurrence: None)
  Receive Date: 20091016
  Receipt Date: 20091005
  Transmission Date: 20100525
  Serious: Yes (Hospitalization, Other)
  Sender: FDA-Public Use
  Company Number: PHHY2009FR43195

PATIENT
  Sex: Male

DRUGS (8)
  1. EXELON [Suspect]
     Indication: MEMORY IMPAIRMENT
     Dosage: 4.6 MG, DAILY
     Route: 062
     Dates: start: 20090729, end: 20090827
  2. EXELON [Suspect]
     Dosage: 9.5 MG, DAILY
     Route: 062
     Dates: start: 20090828, end: 20090904
  3. EXELON [Suspect]
     Dosage: 4.6 MG, DAILY
     Route: 062
     Dates: start: 20090904
  4. SINEMET [Suspect]
     Indication: PARKINSON'S DISEASE
     Dosage: 4.5 DF, DAILY
  5. SINEMET [Suspect]
     Dosage: 9 DF, DAILY
     Dates: start: 20090729
  6. SINEMET [Suspect]
     Dosage: 4.5 DF, DAILY
     Dates: start: 20090904
  7. AMLOR [Concomitant]
     Indication: HYPERTENSION
     Dosage: 5 MG, UNK
  8. KARDEGIC [Concomitant]
     Indication: TRANSIENT ISCHAEMIC ATTACK
     Dosage: 1 DF DAILY

REACTIONS (4)
  - CONFUSIONAL STATE [None]
  - DISORIENTATION [None]
  - LOSS OF CONSCIOUSNESS [None]
  - MALAISE [None]
